FAERS Safety Report 25063529 (Version 1)
Quarter: 2025Q1

REPORT INFORMATION
  Report Type: Spontaneous
  Country: CA (occurrence: CA)
  Receive Date: 20250311
  Receipt Date: 20250311
  Transmission Date: 20250409
  Serious: Yes (Other)
  Sender: ROCHE
  Company Number: CA-002147023-NVSC2025CA037564

PATIENT
  Age: 68 Year
  Sex: Female

DRUGS (2)
  1. OMALIZUMAB [Suspect]
     Active Substance: OMALIZUMAB
     Indication: Chronic spontaneous urticaria
     Route: 058
  2. MONTELUKAST [Suspect]
     Active Substance: MONTELUKAST
     Indication: Product used for unknown indication
     Route: 065

REACTIONS (8)
  - Anaphylactic reaction [Unknown]
  - Autoimmune disorder [Unknown]
  - Cough [Unknown]
  - Lip swelling [Unknown]
  - Mouth swelling [Unknown]
  - Oropharyngeal pain [Unknown]
  - Sinusitis [Unknown]
  - Urticaria [Unknown]
